FAERS Safety Report 11160447 (Version 1)
Quarter: 2015Q2

REPORT INFORMATION
  Report Type: Spontaneous
  Country: US (occurrence: US)
  Receive Date: 20150604
  Receipt Date: 20150604
  Transmission Date: 20150821
  Serious: No
  Sender: FDA-Public Use
  Company Number: US-SA-2014SA058431

PATIENT
  Age: 74 Year
  Sex: Male

DRUGS (4)
  1. LASIX [Concomitant]
     Active Substance: FUROSEMIDE
     Indication: FLUID RETENTION
     Dosage: DRUG STOPPED 7 YEARS AGO
     Route: 065
  2. LANTUS [Suspect]
     Active Substance: INSULIN GLARGINE
     Indication: TYPE 2 DIABETES MELLITUS
     Dosage: 36AM / 83 HS?FORM : SHOT
     Route: 065
  3. LANTUS [Suspect]
     Active Substance: INSULIN GLARGINE
     Indication: TYPE 2 DIABETES MELLITUS
     Dosage: 36AM / 83 HS?FORM : SHOT
     Route: 065
     Dates: start: 2004
  4. LANTUS [Suspect]
     Active Substance: INSULIN GLARGINE
     Indication: TYPE 2 DIABETES MELLITUS
     Dosage: 36AM / 83 HS?FORM : SHOT
     Route: 065

REACTIONS (2)
  - Drug administration error [Unknown]
  - Blood glucose increased [Recovered/Resolved]
